FAERS Safety Report 15571522 (Version 1)
Quarter: 2018Q4

REPORT INFORMATION
  Report Type: Spontaneous
  Country: US (occurrence: US)
  Receive Date: 20181026
  Receipt Date: 20181026
  Transmission Date: 20190205
  Serious: No
  Sender: FDA-Public Use
  Company Number: None

PATIENT
  Age: 36 Year
  Sex: Female
  Weight: 122.92 kg

DRUGS (2)
  1. BENLYSTA [Suspect]
     Active Substance: BELIMUMAB
     Indication: SYSTEMIC LUPUS ERYTHEMATOSUS
     Dosage: ?          OTHER FREQUENCY:INFUSE, INTRAVEOUS;OTHER ROUTE:OVR 1HR, ON DAY 1, 14, 28 AS DIRECTED?
     Dates: start: 201601
  2. BENLYSTA [Suspect]
     Active Substance: BELIMUMAB
     Indication: SYSTEMIC LUPUS ERYTHEMATOSUS
     Dosage: ?          OTHER FREQUENCY:OVER 1HR, ON DAY 1;OTHER ROUTE:INTRAVENOUSLY, DAY 1, 14, 28?

REACTIONS (1)
  - Hospitalisation [None]
